FAERS Safety Report 4601094-0 (Version None)
Quarter: 2005Q1

REPORT INFORMATION
  Report Type: 
  Country: None (occurrence: None)
  Receive Date: 20050304
  Receipt Date: 20050304
  Transmission Date: 20050727
  Serious: Yes (Hospitalization)
  Sender: FDA-Public Use
  Company Number: None

PATIENT
  Sex: Male
  Weight: 82.5 kg

DRUGS (8)
  1. TAXOTERE [Suspect]
     Indication: NON-SMALL CELL LUNG CANCER
     Dosage: 71 MG IV
     Route: 042
     Dates: start: 20050222
  2. TAXOTERE [Suspect]
     Indication: NON-SMALL CELL LUNG CANCER
     Dosage: 71 MG IV
     Route: 042
     Dates: start: 20050301
  3. IRESSA [Suspect]
     Indication: NON-SMALL CELL LUNG CANCER
     Dosage: 250 MG PO QD
     Route: 048
     Dates: start: 20050222
  4. PERCOCET [Concomitant]
  5. METOPROLOL [Concomitant]
  6. DOCUSATE [Concomitant]
  7. IBUPROFEN [Concomitant]
  8. RANITIDINE [Concomitant]

REACTIONS (1)
  - PNEUMONIA [None]
